FAERS Safety Report 10778121 (Version 2)
Quarter: 2015Q2

REPORT INFORMATION
  Report Type: Spontaneous
  Country: US (occurrence: US)
  Receive Date: 20150209
  Receipt Date: 20150401
  Transmission Date: 20150821
  Serious: No
  Sender: FDA-Public Use
  Company Number: US-PFIZER INC-2015052817

PATIENT
  Age: 72 Year
  Sex: Male

DRUGS (5)
  1. NAMENDA [Concomitant]
     Active Substance: MEMANTINE HYDROCHLORIDE
     Dosage: UNK
     Dates: start: 20130405
  2. LYRICA [Suspect]
     Active Substance: PREGABALIN
     Indication: HEADACHE
     Dosage: 50 MG, DAILY
     Dates: start: 20131205
  3. ARICEPT [Concomitant]
     Active Substance: DONEPEZIL HYDROCHLORIDE
     Dosage: UNK
     Dates: start: 20130130
  4. LEXAPRO [Concomitant]
     Active Substance: ESCITALOPRAM OXALATE
     Dosage: UNK
     Dates: start: 20130703
  5. LYRICA [Suspect]
     Active Substance: PREGABALIN
     Dosage: 50 MG, 2X/DAY

REACTIONS (1)
  - Dizziness [Recovered/Resolved]
